FAERS Safety Report 4706486-7 (Version None)
Quarter: 2005Q3

REPORT INFORMATION
  Report Type: 
  Country: None (occurrence: None)
  Receive Date: 20050705
  Receipt Date: 20050624
  Transmission Date: 20060218
  Serious: Yes (Life-Threatening)
  Sender: FDA-Public Use
  Company Number: FR-GLAXOSMITHKLINE-B0385695A

PATIENT
  Age: 82 Year
  Sex: Female
  Weight: 51 kg

DRUGS (2)
  1. AUGMENTIN '125' [Suspect]
     Indication: ILL-DEFINED DISORDER
     Dosage: 1G SINGLE DOSE
     Route: 042
     Dates: start: 20050531, end: 20050531
  2. SECTRAL [Concomitant]
     Route: 065

REACTIONS (4)
  - ATRIOVENTRICULAR BLOCK [None]
  - CARDIAC PACEMAKER INSERTION [None]
  - CIRCULATORY COLLAPSE [None]
  - RESUSCITATION [None]
